FAERS Safety Report 8539019-8 (Version None)
Quarter: 2012Q3

REPORT INFORMATION
  Report Type: 
  Country: None (occurrence: None)
  Receive Date: 20120726
  Receipt Date: 20120723
  Transmission Date: 20120928
  Serious: No
  Sender: FDA-Public Use
  Company Number: PHEH2012US013433

PATIENT
  Sex: Female
  Weight: 65.306 kg

DRUGS (5)
  1. FLEXERIL [Concomitant]
  2. PREMARIN [Concomitant]
  3. BUPROPION HCL [Concomitant]
  4. GILENYA [Suspect]
     Indication: MULTIPLE SCLEROSIS
     Dosage: 0.5 MG, QD
     Route: 048
     Dates: start: 20120509, end: 20120625
  5. WELLBUTRIN [Concomitant]

REACTIONS (1)
  - HALLUCINATION, VISUAL [None]
